FAERS Safety Report 15470783 (Version 4)
Quarter: 2019Q4

REPORT INFORMATION
  Report Type: Spontaneous
  Country: US (occurrence: US)
  Receive Date: 20181005
  Receipt Date: 20191025
  Transmission Date: 20200122
  Serious: No
  Sender: FDA-Public Use
  Company Number: US-OTSUKA-2018_020711

PATIENT
  Sex: Male

DRUGS (5)
  1. ABILIFY [Suspect]
     Active Substance: ARIPIPRAZOLE
     Indication: SCHIZOPHRENIA
     Dosage: 2 MG, QD
     Route: 065
     Dates: start: 200704
  2. ABILIFY [Suspect]
     Active Substance: ARIPIPRAZOLE
     Indication: SCHIZOAFFECTIVE DISORDER
     Dosage: 10 MG, QD
     Route: 065
  3. ABILIFY [Suspect]
     Active Substance: ARIPIPRAZOLE
     Dosage: 15 MG, QD
     Route: 065
  4. ABILIFY [Suspect]
     Active Substance: ARIPIPRAZOLE
     Indication: MAJOR DEPRESSION
     Dosage: 5 MG, QD
     Route: 065
  5. ABILIFY [Suspect]
     Active Substance: ARIPIPRAZOLE
     Dosage: 30 MG, QD
     Route: 065
     Dates: end: 201510

REACTIONS (14)
  - Anhedonia [Unknown]
  - Condition aggravated [Recovered/Resolved]
  - Impulse-control disorder [Unknown]
  - Injury [Unknown]
  - Obsessive-compulsive disorder [Recovered/Resolved]
  - Compulsive sexual behaviour [Recovered/Resolved]
  - Anxiety [Unknown]
  - Condition aggravated [Unknown]
  - Emotional distress [Unknown]
  - Gambling disorder [Recovered/Resolved]
  - Product use in unapproved indication [Unknown]
  - Sexual dysfunction [Recovered/Resolved]
  - Pain [Unknown]
  - Economic problem [Unknown]

NARRATIVE: CASE EVENT DATE: 200704
